FAERS Safety Report 9384901 (Version 1)
Quarter: 2013Q3

REPORT INFORMATION
  Report Type: Spontaneous
  Country: CA (occurrence: None)
  Receive Date: 20130701
  Receipt Date: 20130701
  Transmission Date: 20140515
  Serious: Yes (Other)
  Sender: FDA-Public Use
  Company Number: COR_00011_2013

PATIENT
  Sex: Male

DRUGS (2)
  1. CCNU [Suspect]
     Indication: GLIOBLASTOMA
     Dosage: DF
  2. AVASTIN [Suspect]
     Indication: GLIOBLASTOMA
     Dosage: DF
     Dates: start: 20121206

REACTIONS (2)
  - Malignant neoplasm progression [None]
  - Glioblastoma [None]
